FAERS Safety Report 5569772-7 (Version None)
Quarter: 2007Q4

REPORT INFORMATION
  Report Type: 
  Country: None (occurrence: None)
  Receive Date: 20071220
  Receipt Date: 20070116
  Transmission Date: 20080405
  Serious: No
  Sender: FDA-Public Use
  Company Number: US-ABBOTT-07P-163-0356461-00

PATIENT
  Sex: Female
  Weight: 59.928 kg

DRUGS (3)
  1. OMNICEF [Suspect]
     Indication: SINUSITIS
     Route: 048
     Dates: start: 20070111, end: 20070115
  2. LEVOXIL [Concomitant]
     Indication: HYPOTHYROIDISM
     Route: 048
     Dates: start: 20010101
  3. PREMCAL [Concomitant]
     Indication: MINERAL SUPPLEMENTATION
     Route: 048
     Dates: start: 20040101

REACTIONS (1)
  - FLATULENCE [None]
